FAERS Safety Report 19912242 (Version 1)
Quarter: 2021Q4

REPORT INFORMATION
  Report Type: Spontaneous
  Country: US (occurrence: US)
  Receive Date: 20211002
  Receipt Date: 20211002
  Transmission Date: 20220303
  Serious: No
  Sender: FDA-Public Use
  Company Number: None

PATIENT
  Age: 43 Year
  Sex: Female
  Weight: 83.25 kg

DRUGS (2)
  1. OFLOXACIN OTIC [Suspect]
     Active Substance: OFLOXACIN
     Indication: Product used for unknown indication
     Dosage: QUANTITY:5 DROP(S);
     Route: 001
     Dates: start: 20210929, end: 20211001
  2. VITAMIN B12 [Concomitant]
     Active Substance: CYANOCOBALAMIN

REACTIONS (15)
  - Agitation [None]
  - Vision blurred [None]
  - Dizziness [None]
  - Nausea [None]
  - Headache [None]
  - Diarrhoea [None]
  - Irritability [None]
  - Throat tightness [None]
  - Paraesthesia oral [None]
  - Pain [None]
  - Paranasal sinus discomfort [None]
  - Pruritus [None]
  - Pharyngeal paraesthesia [None]
  - Chest pain [None]
  - Abdominal pain upper [None]

NARRATIVE: CASE EVENT DATE: 20211001
